FAERS Safety Report 5941268-X (Version None)
Quarter: 2008Q4

REPORT INFORMATION
  Report Type: 
  Country: None (occurrence: None)
  Receive Date: 20081103
  Receipt Date: 20081103
  Transmission Date: 20090506
  Serious: Yes (Other)
  Sender: FDA-Public Use
  Company Number: None

PATIENT
  Age: 54 Year
  Sex: Female
  Weight: 81.6475 kg

DRUGS (1)
  1. LISINOPRIL [Suspect]

REACTIONS (8)
  - CHEST DISCOMFORT [None]
  - COUGH [None]
  - INFLUENZA LIKE ILLNESS [None]
  - JOINT SWELLING [None]
  - MYOCARDIAL INFARCTION [None]
  - PAIN [None]
  - PYREXIA [None]
  - VOMITING [None]
